FAERS Safety Report 16177679 (Version 2)
Quarter: 2019Q2

REPORT INFORMATION
  Report Type: Report from Study
  Country: US (occurrence: US)
  Receive Date: 20190410
  Receipt Date: 20190415
  Transmission Date: 20190711
  Serious: No
  Sender: FDA-Public Use
  Company Number: US-AMGEN-USASP2019055080

PATIENT
  Age: 36 Year
  Sex: Male

DRUGS (2)
  1. VECTIBIX [Suspect]
     Active Substance: PANITUMUMAB
     Indication: COLORECTAL CANCER METASTATIC
     Dosage: 458 MILLIGRAM
     Route: 065
     Dates: start: 20190307
  2. VECTIBIX [Suspect]
     Active Substance: PANITUMUMAB
     Dosage: 458 MILLIGRAM
     Route: 065
     Dates: start: 20190321

REACTIONS (1)
  - Liver function test abnormal [Not Recovered/Not Resolved]

NARRATIVE: CASE EVENT DATE: 20190404
